FAERS Safety Report 6669966-3 (Version None)
Quarter: 2010Q2

REPORT INFORMATION
  Report Type: 
  Country: None (occurrence: None)
  Receive Date: 20100406
  Receipt Date: 20100319
  Transmission Date: 20101027
  Serious: No
  Sender: FDA-Public Use
  Company Number: US-ALLERGAN-1000952US

PATIENT
  Sex: Female

DRUGS (4)
  1. LATISSE [Suspect]
     Indication: GROWTH OF EYELASHES
     Dosage: 1 GTT, QHS
     Route: 061
     Dates: start: 20090901, end: 20091201
  2. LATISSE [Suspect]
     Dosage: UNK
     Route: 061
     Dates: start: 20100301
  3. CONTRACEPTIVES NOS [Concomitant]
  4. VITAMINS NOS [Concomitant]

REACTIONS (6)
  - DRUG ADMINISTRATION ERROR [None]
  - ERYTHEMA OF EYELID [None]
  - EYE IRRITATION [None]
  - EYE PRURITUS [None]
  - EYELIDS PRURITUS [None]
  - MADAROSIS [None]
